FAERS Safety Report 22016795 (Version 1)
Quarter: 2023Q1

REPORT INFORMATION
  Report Type: Spontaneous
  Country: US (occurrence: US)
  Receive Date: 20230221
  Receipt Date: 20230221
  Transmission Date: 20230418
  Serious: No
  Sender: FDA-Public Use
  Company Number: US-PFIZER INC-202300070483

PATIENT
  Age: 65 Year
  Sex: Female

DRUGS (3)
  1. METHYLPREDNISOLONE [Suspect]
     Active Substance: METHYLPREDNISOLONE
     Indication: Rheumatoid arthritis
     Dosage: UNK, 21 TABLETS 6 THE FIRST DAY, THEN 5, 4, 3 ,2, 1
  2. PREDNISONE [Suspect]
     Active Substance: PREDNISONE
     Indication: Rheumatoid arthritis
     Dosage: UNK, 9 DAY DOSE (3-3-3, 2-2-2, THEN 1-1-1)
  3. METHOTREXATE SODIUM [Concomitant]
     Active Substance: METHOTREXATE SODIUM
     Dosage: 10 MG, WEEKLY, (2.5 MG ONCE A WEEK 4 TABLETS BY MOUTH EVERY 7 DAYS FOR THE NEXT 4 WEEKS)
     Route: 048
     Dates: start: 20230213

REACTIONS (1)
  - Drug ineffective [Unknown]
